FAERS Safety Report 21236097 (Version 1)
Quarter: 2022Q3

REPORT INFORMATION
  Report Type: Other
  Country: GB (occurrence: GB)
  Receive Date: 20220822
  Receipt Date: 20220822
  Transmission Date: 20221027
  Serious: Yes (Other)
  Sender: FDA-Public Use
  Company Number: GB-CELLTRION INC.-2022GB013259

PATIENT

DRUGS (2)
  1. INFLIXIMAB [Suspect]
     Active Substance: INFLIXIMAB
     Indication: Product used for unknown indication
     Dosage: 1 MG
  2. WATER [Suspect]
     Active Substance: WATER
     Indication: Product used for unknown indication

REACTIONS (6)
  - COVID-19 [Unknown]
  - Decreased appetite [Unknown]
  - Oropharyngeal pain [Unknown]
  - Fatigue [Unknown]
  - Back pain [Unknown]
  - Cough [Unknown]
